FAERS Safety Report 9087522 (Version 1)
Quarter: 2013Q1

REPORT INFORMATION
  Report Type: Spontaneous
  Country: US (occurrence: US)
  Receive Date: 20130201
  Receipt Date: 20130201
  Transmission Date: 20140127
  Serious: No
  Sender: FDA-Public Use
  Company Number: US-GALDERMA-US-GDP-12415367

PATIENT
  Sex: Male
  Weight: 48 kg

DRUGS (4)
  1. EPIDUO [Suspect]
     Indication: ACNE
     Route: 061
     Dates: start: 201209
  2. EPIDUO [Suspect]
     Route: 061
  3. SULFA MEDICATION [Suspect]
     Indication: INFECTION
  4. NO DRUG NAME [Suspect]

REACTIONS (3)
  - Drug interaction [Unknown]
  - Acne [Unknown]
  - Skin burning sensation [Recovering/Resolving]
